FAERS Safety Report 6379125-X (Version None)
Quarter: 2009Q3

REPORT INFORMATION
  Report Type: 
  Country: None (occurrence: None)
  Receive Date: 20090923
  Receipt Date: 20090910
  Transmission Date: 20100115
  Serious: Yes (Other)
  Sender: FDA-Public Use
  Company Number: DSA_41655_2009

PATIENT
  Sex: Female

DRUGS (8)
  1. BUPROPION HCL [Suspect]
     Indication: BIPOLAR DISORDER
     Dosage: 150 MG QD ORAL
     Route: 048
     Dates: start: 20090908, end: 20090910
  2. BUPROPION HCL [Suspect]
     Indication: DEPRESSION
     Dosage: 150 MG QD ORAL
     Route: 048
     Dates: start: 20090908, end: 20090910
  3. BUPROPION HCL [Suspect]
     Indication: GENERALISED ANXIETY DISORDER
     Dosage: 150 MG QD ORAL
     Route: 048
     Dates: start: 20090908, end: 20090910
  4. TOPAMAX [Concomitant]
  5. GABATROL [Concomitant]
  6. XANAX [Concomitant]
  7. LEXAPRO [Concomitant]
  8. BUSPAR [Concomitant]

REACTIONS (1)
  - HAEMORRHAGE URINARY TRACT [None]
